FAERS Safety Report 8012886-2 (Version None)
Quarter: 2011Q4

REPORT INFORMATION
  Report Type: 
  Country: None (occurrence: None)
  Receive Date: 20111223
  Receipt Date: 20111209
  Transmission Date: 20120403
  Serious: No
  Sender: FDA-Public Use
  Company Number: SPI201100334

PATIENT
  Sex: Female

DRUGS (1)
  1. AMITIZA [Suspect]
     Indication: CONSTIPATION
     Dosage: 24 MCG, BID, ORAL
     Route: 048

REACTIONS (5)
  - ERYTHEMA [None]
  - SWELLING FACE [None]
  - DYSPNOEA [None]
  - CHEST PAIN [None]
  - NAUSEA [None]
